FAERS Safety Report 20901513 (Version 1)
Quarter: 2022Q2

REPORT INFORMATION
  Report Type: Other
  Country: None (occurrence: IL)
  Receive Date: 20220601
  Receipt Date: 20220601
  Transmission Date: 20220720
  Serious: Yes (Life-Threatening, Hospitalization, Other)
  Sender: FDA-Public Use
  Company Number: IL-VGYAAN Pharmaceuticals LLC-2129365

PATIENT
  Age: 14 Year
  Sex: Male

DRUGS (2)
  1. CARBAMAZEPINE [Suspect]
     Active Substance: CARBAMAZEPINE
     Indication: Product used for unknown indication
     Route: 065
  2. ENALAPRIL MALEATE [Suspect]
     Active Substance: ENALAPRIL MALEATE
     Route: 065

REACTIONS (3)
  - Cognitive disorder [Recovered/Resolved]
  - Toxicity to various agents [Recovered/Resolved]
  - Intentional overdose [Unknown]
